FAERS Safety Report 20737816 (Version 2)
Quarter: 2022Q2

REPORT INFORMATION
  Report Type: Report from Study
  Country: US (occurrence: US)
  Receive Date: 20220422
  Receipt Date: 20220510
  Transmission Date: 20220721
  Serious: Yes (Hospitalization, Other)
  Sender: FDA-Public Use
  Company Number: US-BRISTOL-MYERS SQUIBB COMPANY-2022-019783

PATIENT
  Age: 63 Year
  Sex: Male
  Weight: 68.9 kg

DRUGS (2)
  1. IPILIMUMAB [Suspect]
     Active Substance: IPILIMUMAB
     Indication: Renal cell carcinoma
     Dosage: 70 MILLIGRAM 1 MG/KG IV ON DAY 1 CYCLE  21 DAY MAX 4 CYCLES
     Route: 042
     Dates: start: 20220228, end: 20220322
  2. NIVOLUMAB [Suspect]
     Active Substance: NIVOLUMAB
     Indication: Renal cell carcinoma
     Dosage: 200 MILLIGRAM  3 MG/KG IV ON DAY 1 CYCLE  21 DAY MAX 4 CYCLES
     Route: 042
     Dates: start: 20220228, end: 20220322

REACTIONS (3)
  - Haematuria [Recovered/Resolved with Sequelae]
  - Hypoxia [Recovered/Resolved]
  - Acute myocardial infarction [Unknown]

NARRATIVE: CASE EVENT DATE: 20220401
